FAERS Safety Report 13068347 (Version 1)
Quarter: 2016Q4

REPORT INFORMATION
  Report Type: Spontaneous
  Country: DE (occurrence: DE)
  Receive Date: 20161228
  Receipt Date: 20161228
  Transmission Date: 20170207
  Serious: Yes (Other)
  Sender: FDA-Public Use
  Company Number: DE-ASTRAZENECA-2016SF34712

PATIENT
  Age: 19 Year
  Sex: Female
  Weight: 76 kg

DRUGS (3)
  1. XIGDUO XR [Suspect]
     Active Substance: DAPAGLIFLOZIN PROPANEDIOL\METFORMIN HYDROCHLORIDE
     Indication: TYPE 2 DIABETES MELLITUS
     Dosage: 5/1000 MG
     Route: 048
     Dates: start: 20160901, end: 20161206
  2. HUMINSULIN BASAL [Concomitant]
     Active Substance: INSULIN NOS
     Dosage: 0-0-0-25 IU
     Route: 058
  3. NOVORAPID [Concomitant]
     Active Substance: INSULIN ASPART
     Dosage: 20-10-15 IE
     Route: 058

REACTIONS (2)
  - Ketoacidosis [Recovering/Resolving]
  - Anaemia [Unknown]

NARRATIVE: CASE EVENT DATE: 20161206
